FAERS Safety Report 9345303 (Version 3)
Quarter: 2014Q1

REPORT INFORMATION
  Report Type: Spontaneous
  Country: US (occurrence: US)
  Receive Date: 20130613
  Receipt Date: 20140227
  Transmission Date: 20141002
  Serious: Yes (Hospitalization)
  Sender: FDA-Public Use
  Company Number: US-B.I. PHARMACEUTICALS,INC./RIDGEFIELD-2013-BI-16115BP

PATIENT
  Sex: Female
  Weight: 63.5 kg

DRUGS (20)
  1. PRADAXA [Suspect]
     Indication: CEREBROVASCULAR ACCIDENT PROPHYLAXIS
     Dosage: 75 MG
     Route: 065
     Dates: start: 20111205, end: 20120328
  2. PRADAXA [Suspect]
     Indication: THROMBOSIS PROPHYLAXIS
  3. LEFLUNOMIDE [Concomitant]
     Dosage: 20 MG
     Route: 065
     Dates: start: 2004
  4. FUROSEMIDE [Concomitant]
     Dosage: 20 MG
     Route: 065
     Dates: start: 2004
  5. PREDNISONE [Concomitant]
     Dosage: 5 MG
     Route: 065
     Dates: start: 2004
  6. LEVOTHYROXINE [Concomitant]
     Route: 065
     Dates: start: 2004
  7. OXYBUTYNIN [Concomitant]
     Dosage: 10 MG
     Route: 065
  8. LISINOPRIL [Concomitant]
     Route: 065
  9. NYSTATIN [Concomitant]
     Route: 065
  10. MECLIZINE [Concomitant]
     Route: 065
  11. GEMFIBROZIL [Concomitant]
     Dosage: 1200 MG
     Route: 065
  12. ZETIA [Concomitant]
     Route: 065
  13. RANITIDINE [Concomitant]
     Dosage: 300 MG
     Route: 065
  14. HYDROCODONE-ACETAMINOPHEN [Concomitant]
     Route: 065
  15. CARVEDILOL [Concomitant]
     Route: 065
  16. FOLIC ACID [Concomitant]
     Dosage: 400 MCG
     Route: 065
  17. MAGNESIUM [Concomitant]
     Dosage: 500 MG
     Route: 065
  18. ATIVAN [Concomitant]
     Route: 065
  19. NOVOLOG [Concomitant]
     Dosage: 20 U
     Route: 065
  20. B12 [Concomitant]
     Route: 065

REACTIONS (3)
  - Gastrointestinal haemorrhage [Unknown]
  - Normochromic normocytic anaemia [Unknown]
  - Increased tendency to bruise [Unknown]
